FAERS Safety Report 20772527 (Version 1)
Quarter: 2022Q2

REPORT INFORMATION
  Report Type: Spontaneous
  Country: IT (occurrence: IT)
  Receive Date: 20220502
  Receipt Date: 20220502
  Transmission Date: 20220721
  Serious: Yes (Other)
  Sender: FDA-Public Use
  Company Number: None

PATIENT
  Sex: Female

DRUGS (8)
  1. DALBAVANCIN HYDROCHLORIDE [Suspect]
     Active Substance: DALBAVANCIN HYDROCHLORIDE
     Indication: Osteomyelitis
     Dosage: UNK UNK, SINGLE
     Route: 042
     Dates: start: 20220405, end: 20220405
  2. DALBAVANCIN HYDROCHLORIDE [Suspect]
     Active Substance: DALBAVANCIN HYDROCHLORIDE
     Dosage: UNK UNK, SINGLE
     Route: 042
     Dates: start: 20220301, end: 20220301
  3. DALBAVANCIN HYDROCHLORIDE [Suspect]
     Active Substance: DALBAVANCIN HYDROCHLORIDE
     Dosage: UNK UNK, SINGLE
     Route: 042
     Dates: start: 20220222, end: 20220222
  4. SERTRALINE [Concomitant]
     Active Substance: SERTRALINE HYDROCHLORIDE
     Route: 048
  5. PREGABALIN [Concomitant]
     Active Substance: PREGABALIN
     Route: 048
  6. MILVANE COMPRESSE RIVESTITE [Concomitant]
     Route: 048
  7. ENOXAPARIN [Concomitant]
     Active Substance: ENOXAPARIN
     Route: 058
  8. PALEXIA [Concomitant]
     Active Substance: TAPENTADOL HYDROCHLORIDE
     Route: 048

REACTIONS (3)
  - Eczema [Recovering/Resolving]
  - Rash pruritic [Recovering/Resolving]
  - Off label use [Unknown]

NARRATIVE: CASE EVENT DATE: 20220405
